FAERS Safety Report 8776781 (Version 1)
Quarter: 2012Q4

REPORT INFORMATION
  Report Type: 
  Country: IT (occurrence: IT)
  Receive Date: 20120910
  Receipt Date: 20120910
  Transmission Date: 20130627
  Serious: Yes (Other)
  Sender: FDA-Public Use
  Company Number: IT-CELGENEUS-083-21880-12083302

PATIENT

DRUGS (5)
  1. REVLIMID [Suspect]
     Indication: MYELOMA RECURRENCE
     Dosage: 10 Milligram
     Route: 048
     Dates: start: 20110215, end: 20120713
  2. DEXAMETHASONE [Concomitant]
     Indication: DRUG USE FOR UNKNOWN INDICATION
     Route: 048
     Dates: start: 20110215, end: 20120713
  3. OMEPRAZOLE [Concomitant]
     Indication: DRUG USE FOR UNKNOWN INDICATION
     Route: 048
     Dates: start: 20110215, end: 20120713
  4. COUMADIN [Concomitant]
     Indication: DRUG USE FOR UNKNOWN INDICATION
     Route: 048
     Dates: start: 20110215, end: 20120829
  5. SULFAMETHOXAZOLE TRIMETHOPRIM [Concomitant]
     Indication: DRUG USE FOR UNKNOWN INDICATION
     Dosage: 800+160
     Route: 048
     Dates: start: 20110215, end: 20120713

REACTIONS (1)
  - Myelodysplastic syndrome [Not Recovered/Not Resolved]
